FAERS Safety Report 6112447-6 (Version None)
Quarter: 2009Q1

REPORT INFORMATION
  Report Type: 
  Country: None (occurrence: None)
  Receive Date: 20090311
  Receipt Date: 20090311
  Transmission Date: 20090719
  Serious: Yes (Hospitalization)
  Sender: FDA-Public Use
  Company Number: None

PATIENT
  Age: 74 Year
  Sex: Male
  Weight: 77.6 kg

DRUGS (1)
  1. OPRELVEKIN [Suspect]
     Indication: PLATELET COUNT DECREASED
     Dosage: 4 MG EVERY DAY SQ
     Route: 058
     Dates: start: 20090212, end: 20090218

REACTIONS (3)
  - CARDIAC FAILURE CONGESTIVE [None]
  - FLUID OVERLOAD [None]
  - WEIGHT INCREASED [None]
